FAERS Safety Report 21420474 (Version 3)
Quarter: 2023Q1

REPORT INFORMATION
  Report Type: Report from Study
  Country: US (occurrence: US)
  Receive Date: 20221007
  Receipt Date: 20230106
  Transmission Date: 20230418
  Serious: Yes (Hospitalization, Other)
  Sender: FDA-Public Use
  Company Number: US-GILEAD-2022-0600267

PATIENT
  Age: 67 Year
  Sex: Female

DRUGS (7)
  1. AZTREONAM LYSINE [Suspect]
     Active Substance: AZTREONAM LYSINE
     Indication: Illness
     Dosage: 75 MG, TID FOR 28 DAYS ON AND 28 DAYS OFF
     Route: 055
     Dates: start: 202206
  2. AZTREONAM LYSINE [Suspect]
     Active Substance: AZTREONAM LYSINE
     Indication: Osteoporosis
  3. PREDNISONE [Concomitant]
     Active Substance: PREDNISONE
  4. PROGRAF [Concomitant]
     Active Substance: TACROLIMUS
  5. MYCOPHENOLIC ACID [MYCOPHENOLATE SODIUM] [Concomitant]
  6. PROLIA [Concomitant]
     Active Substance: DENOSUMAB
     Dosage: INJECT UNDER THE SKIN EVERY 6 MONTHS
  7. TOBI [Concomitant]
     Active Substance: TOBRAMYCIN

REACTIONS (6)
  - Candida infection [Unknown]
  - Pharyngitis streptococcal [Recovered/Resolved]
  - Sjogren^s syndrome [Not Recovered/Not Resolved]
  - Off label use [Not Recovered/Not Resolved]
  - Burning mouth syndrome [Unknown]
  - Paraesthesia oral [Unknown]

NARRATIVE: CASE EVENT DATE: 20220601
